FAERS Safety Report 9345988 (Version 1)
Quarter: 2013Q2

REPORT INFORMATION
  Report Type: Spontaneous
  Country: BR (occurrence: BR)
  Receive Date: 20130613
  Receipt Date: 20130613
  Transmission Date: 20140414
  Serious: Yes (Other)
  Sender: FDA-Public Use
  Company Number: BR-JNJFOC-20130606937

PATIENT
  Sex: Female
  Weight: 67 kg

DRUGS (2)
  1. NICORETTE 2 MG GUM [Suspect]
     Indication: NICOTINE DEPENDENCE
     Dosage: 2 OR 3 GUMS
     Route: 048
     Dates: start: 2003
  2. PURAN T4 [Concomitant]
     Indication: HYPOTHYROIDISM
     Route: 065

REACTIONS (3)
  - Nicotine dependence [Not Recovered/Not Resolved]
  - Intentional drug misuse [Unknown]
  - Wrong technique in drug usage process [Unknown]
